FAERS Safety Report 8824649 (Version 4)
Quarter: 2014Q2

REPORT INFORMATION
  Report Type: Spontaneous
  Country: US (occurrence: US)
  Receive Date: 20121004
  Receipt Date: 20140620
  Transmission Date: 20141212
  Serious: Yes (Death, Hospitalization, Other)
  Sender: FDA-Public Use
  Company Number: US-SANOFI-AVENTIS-2012SA072286

PATIENT
  Age: 81 Year
  Sex: Female
  Weight: 82.1 kg

DRUGS (25)
  1. MULTAQ [Suspect]
     Indication: ATRIAL FIBRILLATION
     Route: 048
     Dates: start: 20100325
  2. MULTAQ [Suspect]
     Indication: ATRIAL FIBRILLATION
     Route: 048
  3. ALBUMIN [Concomitant]
     Route: 065
  4. SOLU-MEDROL [Concomitant]
     Route: 065
  5. LACTULOSE [Concomitant]
     Route: 065
  6. SYNTHROID [Concomitant]
     Route: 048
  7. MYCOSTATIN [Concomitant]
     Dosage: POWDER
     Route: 065
  8. RIFAXIMIN [Concomitant]
     Route: 065
  9. MORPHINE SULFATE [Concomitant]
     Route: 065
  10. COUMADIN [Concomitant]
  11. LOVENOX [Concomitant]
  12. CARDIZEM [Concomitant]
     Route: 048
  13. CARDIZEM [Concomitant]
     Route: 042
     Dates: start: 20100325
  14. BACTRIM [Concomitant]
  15. I.V. SOLUTIONS [Concomitant]
  16. FENTANYL [Concomitant]
     Route: 065
  17. VERSED [Concomitant]
     Route: 065
  18. CIPRO [Concomitant]
     Route: 048
  19. FUROSEMIDE [Concomitant]
     Route: 048
  20. KLOR-CON [Concomitant]
  21. SULFAMETHOXAZOLE [Concomitant]
     Dosage: 800-160 MG
  22. DETROL [Concomitant]
     Route: 048
  23. METOPROLOL SUCCINATE [Concomitant]
     Route: 048
  24. ADVIL [Concomitant]
  25. CALTRATE [Concomitant]

REACTIONS (34)
  - Hepatic failure [Fatal]
  - Jaundice [Fatal]
  - Chromaturia [Fatal]
  - Blood bilirubin increased [Fatal]
  - Ascites [Fatal]
  - Hepatitis cholestatic [Fatal]
  - Abdominal pain upper [Fatal]
  - Hepatorenal syndrome [Fatal]
  - Nephrolithiasis [Unknown]
  - Renal cyst [Unknown]
  - Pancreatitis acute [Unknown]
  - Hepatic cirrhosis [Unknown]
  - Hepatic neoplasm [Unknown]
  - Hepatic encephalopathy [Unknown]
  - Depressed level of consciousness [Unknown]
  - Mental status changes [Unknown]
  - Renal failure acute [Unknown]
  - Skin disorder [Unknown]
  - Oedema [Unknown]
  - Blister [Recovered/Resolved]
  - Erythema [Unknown]
  - Fungal infection [Unknown]
  - Agitation [Recovered/Resolved]
  - Hiatus hernia [Unknown]
  - Contusion [Unknown]
  - Peripheral swelling [Unknown]
  - Cough [Unknown]
  - Gait disturbance [Unknown]
  - Balance disorder [Unknown]
  - Mental disorder [Unknown]
  - Feeling abnormal [Unknown]
  - Oedema peripheral [Unknown]
  - Diarrhoea [Unknown]
  - Diarrhoea [Unknown]
